FAERS Safety Report 7012517-4 (Version None)
Quarter: 2010Q3

REPORT INFORMATION
  Report Type: 
  Country: None (occurrence: None)
  Receive Date: 20100924
  Receipt Date: 20100914
  Transmission Date: 20110219
  Serious: Yes (Life-Threatening)
  Sender: FDA-Public Use
  Company Number: GB-MPIJNJ-2010-04691

PATIENT

DRUGS (7)
  1. VELCADE [Suspect]
     Indication: MULTIPLE MYELOMA
     Dosage: 2.3 MG, UNK
     Route: 042
     Dates: start: 20100504, end: 20100805
  2. DEXAMETHASONE [Concomitant]
     Indication: MULTIPLE MYELOMA
     Dosage: UNK
  3. SENNA-MINT WAF [Concomitant]
     Indication: CONSTIPATION
     Dosage: UNK
  4. OMEPRAZOLE [Concomitant]
     Indication: PROPHYLAXIS
     Dosage: 20 MG, UNK
     Dates: start: 20100504
  5. LACTULOSE [Concomitant]
     Indication: CONSTIPATION
     Dosage: 10 ML, UNK
  6. COTRIM [Concomitant]
     Indication: PROPHYLAXIS
     Dosage: 960 MG, UNK
  7. ACYCLOVIR SODIUM [Concomitant]
     Indication: ANTIVIRAL PROPHYLAXIS
     Dosage: 200 MG, UNK
     Dates: start: 20100504

REACTIONS (1)
  - DRUG INEFFECTIVE [None]
